FAERS Safety Report 11587800 (Version 1)
Quarter: 2015Q4

REPORT INFORMATION
  Report Type: Spontaneous
  Country: FI (occurrence: FI)
  Receive Date: 20151001
  Receipt Date: 20151001
  Transmission Date: 20160304
  Serious: Yes (Hospitalization, Other)
  Sender: FDA-Public Use
  Company Number: PHHY2015FI117266

PATIENT
  Sex: Male

DRUGS (1)
  1. LEPONEX [Suspect]
     Active Substance: CLOZAPINE
     Indication: PRODUCT USED FOR UNKNOWN INDICATION
     Dosage: 400 MG, QD (100 MG IN THE MORNING, 100 MG IN THE DAY TIME AND 200MG IN THE EVENING)
     Route: 065
     Dates: start: 2014, end: 2015

REACTIONS (4)
  - Ileus paralytic [Recovered/Resolved]
  - Gas gangrene [Recovered/Resolved]
  - Psychiatric symptom [Unknown]
  - Pneumonia [Recovered/Resolved]

NARRATIVE: CASE EVENT DATE: 2015
